FAERS Safety Report 8262911-9 (Version None)
Quarter: 2012Q2

REPORT INFORMATION
  Report Type: 
  Country: None (occurrence: None)
  Receive Date: 20120405
  Receipt Date: 20120330
  Transmission Date: 20120825
  Serious: Yes (Hospitalization)
  Sender: FDA-Public Use
  Company Number: JP-GLAXOSMITHKLINE-B0787971A

PATIENT
  Sex: Male

DRUGS (9)
  1. PROMACTA [Suspect]
     Indication: IDIOPATHIC THROMBOCYTOPENIC PURPURA
     Dosage: 12.5MG PER DAY
     Route: 048
     Dates: start: 20111024, end: 20111126
  2. DIGOXIN [Concomitant]
     Indication: CARDIAC FAILURE CONGESTIVE
     Dosage: .25MG PER DAY
     Route: 048
  3. IMURAN [Suspect]
     Indication: IDIOPATHIC THROMBOCYTOPENIC PURPURA
     Dosage: 50MG PER DAY
     Route: 048
     Dates: start: 19981127, end: 20111119
  4. MOHRUS TAPE [Concomitant]
     Indication: CARDIAC FAILURE CONGESTIVE
     Route: 062
  5. SELBEX [Concomitant]
     Indication: PROPHYLAXIS
     Dosage: 150MG PER DAY
     Route: 048
  6. ALENDRONATE SODIUM [Concomitant]
     Indication: PROPHYLAXIS
     Dosage: 35MG WEEKLY
     Route: 048
  7. PREDNISOLONE [Concomitant]
     Indication: IDIOPATHIC THROMBOCYTOPENIC PURPURA
     Dosage: 10MG PER DAY
     Route: 048
  8. ISODINE GARGLE [Concomitant]
     Indication: PROPHYLAXIS
     Route: 002
  9. HEAVY MAGNESIUM OXIDE [Concomitant]
     Indication: CONSTIPATION
     Route: 048

REACTIONS (1)
  - LYMPHOMA [None]
